FAERS Safety Report 12872496 (Version 1)
Quarter: 2016Q4

REPORT INFORMATION
  Report Type: Spontaneous
  Country: FI (occurrence: FI)
  Receive Date: 20161021
  Receipt Date: 20161021
  Transmission Date: 20170207
  Serious: Yes (Life-Threatening, Hospitalization)
  Sender: FDA-Public Use
  Company Number: FI-ORION CORPORATION ORION PHARMA-TREX2016-1963

PATIENT
  Age: 19 Year
  Sex: Male

DRUGS (7)
  1. TREXAN [Suspect]
     Active Substance: METHOTREXATE SODIUM
     Route: 042
     Dates: start: 20160831, end: 20160831
  2. PEG/L-ASPARAGINASE [Suspect]
     Active Substance: PEGASPARGASE
     Indication: ACUTE LYMPHOCYTIC LEUKAEMIA
     Route: 065
     Dates: start: 20160831, end: 20160831
  3. TREXAN [Suspect]
     Active Substance: METHOTREXATE SODIUM
     Indication: ACUTE LYMPHOCYTIC LEUKAEMIA
     Route: 065
     Dates: start: 20160824
  4. MERCAPTOPURIN (TRADE NAME UNKNOWN) [Suspect]
     Active Substance: MERCAPTOPURINE
     Indication: ACUTE LYMPHOCYTIC LEUKAEMIA
     Route: 048
     Dates: start: 20160824
  5. MERCAPTOPURIN (TRADE NAME UNKNOWN) [Suspect]
     Active Substance: MERCAPTOPURINE
     Route: 048
     Dates: start: 20160831, end: 20160910
  6. TREXAN [Suspect]
     Active Substance: METHOTREXATE SODIUM
     Route: 037
     Dates: start: 20160831, end: 20160831
  7. KEPPRA [Suspect]
     Active Substance: LEVETIRACETAM
     Route: 065

REACTIONS (5)
  - Neutrophil count decreased [Not Recovered/Not Resolved]
  - Hepatic enzyme increased [Unknown]
  - Platelet count decreased [Unknown]
  - Cerebrovascular accident [Recovering/Resolving]
  - Neurotoxicity [Recovering/Resolving]

NARRATIVE: CASE EVENT DATE: 20160909
